FAERS Safety Report 22530081 (Version 1)
Quarter: 2023Q2

REPORT INFORMATION
  Report Type: Spontaneous
  Country: US (occurrence: None)
  Receive Date: 20230605
  Receipt Date: 20230605
  Transmission Date: 20230722
  Serious: Yes (Hospitalization)
  Sender: FDA-Public Use
  Company Number: None

PATIENT
  Sex: Male

DRUGS (1)
  1. TADLIQ [Suspect]
     Active Substance: TADALAFIL
     Dosage: 16MG DAILY ORAL
     Route: 048

REACTIONS (3)
  - Post procedural infection [None]
  - Staphylococcal infection [None]
  - Necrosis [None]
